FAERS Safety Report 4648767-1 (Version None)
Quarter: 2005Q2

REPORT INFORMATION
  Report Type: 
  Country: None (occurrence: None)
  Receive Date: 20050427
  Receipt Date: 20050418
  Transmission Date: 20051028
  Serious: Yes (Hospitalization)
  Sender: FDA-Public Use
  Company Number: 200511616BCC

PATIENT
  Age: 48 Year
  Sex: Male
  Weight: 100.6985 kg

DRUGS (1)
  1. ALKA SELTZER PLUS EFFERVESCENT COLD CHERRY BURST [Suspect]
     Indication: SINUS HEADACHE
     Dosage: ORAL
     Route: 048
     Dates: start: 20040101

REACTIONS (3)
  - ABDOMINAL PAIN UPPER [None]
  - BLOOD TEST ABNORMAL [None]
  - ULCER HAEMORRHAGE [None]
